FAERS Safety Report 6565480-4 (Version None)
Quarter: 2010Q1

REPORT INFORMATION
  Report Type: 
  Country: None (occurrence: None)
  Receive Date: 20100201
  Receipt Date: 20091218
  Transmission Date: 20100710
  Serious: Yes (Death, Other)
  Sender: FDA-Public Use
  Company Number: US-BAXTER-2009BH012843

PATIENT
  Age: 79 Year
  Sex: Female
  Weight: 63 kg

DRUGS (9)
  1. HEPARIN SODIUM INJECTION [Suspect]
     Indication: RENAL FAILURE CHRONIC
     Route: 042
     Dates: start: 20070101
  2. HEPARIN SODIUM INJECTION [Suspect]
     Indication: THROMBOSIS PROPHYLAXIS
     Route: 042
     Dates: start: 20070101
  3. AMLODIPINE [Concomitant]
     Indication: DRUG USE FOR UNKNOWN INDICATION
     Route: 065
  4. AMLODIPINE [Concomitant]
     Route: 065
  5. DILTIA XT [Concomitant]
     Indication: DRUG USE FOR UNKNOWN INDICATION
     Route: 065
  6. PHOSLO [Concomitant]
     Indication: DRUG USE FOR UNKNOWN INDICATION
     Route: 065
  7. ISOSORBIDE MONONITRATE [Concomitant]
     Indication: DRUG USE FOR UNKNOWN INDICATION
     Route: 065
  8. DIOVANE [Concomitant]
     Indication: DRUG USE FOR UNKNOWN INDICATION
     Route: 065
  9. AMIODARONE HCL [Concomitant]
     Indication: DRUG USE FOR UNKNOWN INDICATION
     Route: 065

REACTIONS (11)
  - ABDOMINAL DISTENSION [None]
  - BURNING SENSATION [None]
  - CARDIAC ARREST [None]
  - DIARRHOEA [None]
  - FATIGUE [None]
  - HAEMORRHAGE [None]
  - NAUSEA [None]
  - PRURITUS [None]
  - RASH [None]
  - RENAL FAILURE CHRONIC [None]
  - VISION BLURRED [None]
